FAERS Safety Report 9473180 (Version 1)
Quarter: 2013Q3

REPORT INFORMATION
  Report Type: Spontaneous
  Country: US (occurrence: US)
  Receive Date: 20130823
  Receipt Date: 20130823
  Transmission Date: 20140515
  Serious: No
  Sender: FDA-Public Use
  Company Number: US-BRISTOL-MYERS SQUIBB COMPANY-18733386

PATIENT
  Age: 59 Year
  Sex: Male
  Weight: 82.54 kg

DRUGS (4)
  1. SPRYCEL [Suspect]
     Indication: CHRONIC MYELOID LEUKAEMIA
     Dosage: 0900 HOURS
     Dates: start: 20130329
  2. AMLODIPINE [Concomitant]
     Indication: BLOOD PRESSURE
  3. CARVEDILOL [Concomitant]
  4. NEXIUM [Concomitant]

REACTIONS (1)
  - Diarrhoea [Unknown]
